FAERS Safety Report 16078541 (Version 1)
Quarter: 2019Q1

REPORT INFORMATION
  Report Type: Report from Study
  Country: None (occurrence: US)
  Receive Date: 20190315
  Receipt Date: 20190315
  Transmission Date: 20190418
  Serious: Yes (Other)
  Sender: FDA-Public Use
  Company Number: US-ABBVIE-19S-163-2701467-00

PATIENT
  Sex: Male

DRUGS (1)
  1. CREON [Suspect]
     Active Substance: PANCRELIPASE AMYLASE\PANCRELIPASE LIPASE\PANCRELIPASE PROTEASE
     Indication: PRODUCT USED FOR UNKNOWN INDICATION
     Route: 048

REACTIONS (16)
  - Unevaluable event [Unknown]
  - Diarrhoea [Unknown]
  - Injury [Unknown]
  - Nausea [Unknown]
  - Pancreatectomy [Unknown]
  - Type 1 diabetes mellitus [Unknown]
  - Gastrointestinal disorder [Unknown]
  - Rectal discharge [Unknown]
  - Gastrointestinal sounds abnormal [Unknown]
  - Weight decreased [Unknown]
  - Vertigo [Unknown]
  - Faeces discoloured [Unknown]
  - Flatulence [Unknown]
  - Abdominal distension [Unknown]
  - Change of bowel habit [Unknown]
  - Jaundice [Unknown]

NARRATIVE: CASE EVENT DATE: 2006
